FAERS Safety Report 25573977 (Version 1)
Quarter: 2025Q3

REPORT INFORMATION
  Report Type: Spontaneous
  Country: JP (occurrence: JP)
  Receive Date: 20250717
  Receipt Date: 20250717
  Transmission Date: 20251021
  Serious: Yes (Death, Life-Threatening, Other)
  Sender: Alora Pharma
  Company Number: JP-OSMOTICA PHARMACEUTICALS-2025ALO02344

PATIENT
  Age: 6 Decade
  Sex: Female
  Weight: 43 kg

DRUGS (6)
  1. CARBAMAZEPINE [Suspect]
     Active Substance: CARBAMAZEPINE
     Indication: Epilepsy
     Dosage: 400 MG, 1X/DAY
     Route: 048
  2. VIMPAT [Suspect]
     Active Substance: LACOSAMIDE
     Indication: Epilepsy
     Dosage: 200 MG, 1X/DAY
     Route: 048
  3. VIMPAT [Suspect]
     Active Substance: LACOSAMIDE
     Route: 048
  4. LAMOTRIGINE [Suspect]
     Active Substance: LAMOTRIGINE
     Indication: Epilepsy
     Dosage: 100 MG, 1X/DAY
     Route: 048
  5. PERAMPANEL [Concomitant]
     Active Substance: PERAMPANEL
     Indication: Epilepsy
     Dosage: 12 MG, 1X/DAY
  6. DIPHENHYDRAMINE [Concomitant]
     Active Substance: DIPHENHYDRAMINE

REACTIONS (3)
  - Suicidal ideation [Unknown]
  - Drug interaction [Unknown]
  - Overdose [Fatal]
